FAERS Safety Report 7583276-1 (Version None)
Quarter: 2011Q2

REPORT INFORMATION
  Report Type: 
  Country: None (occurrence: None)
  Receive Date: 20110630
  Receipt Date: 20110624
  Transmission Date: 20111010
  Serious: Yes (Hospitalization)
  Sender: FDA-Public Use
  Company Number: JP-JNJFOC-20110612162

PATIENT
  Age: 80 Year
  Sex: Male

DRUGS (2)
  1. UNISIA [Concomitant]
     Route: 048
  2. GALANTAMINE HYDROBROMIDE [Suspect]
     Indication: DEMENTIA ALZHEIMER'S TYPE
     Route: 048
     Dates: start: 20110513, end: 20110602

REACTIONS (3)
  - MUSCULOSKELETAL STIFFNESS [None]
  - INFECTION [None]
  - CONVULSION [None]
